FAERS Safety Report 22279338 (Version 2)
Quarter: 2023Q2

REPORT INFORMATION
  Report Type: Spontaneous
  Country: JP (occurrence: JP)
  Receive Date: 20230503
  Receipt Date: 20230531
  Transmission Date: 20230721
  Serious: Yes (Hospitalization)
  Sender: FDA-Public Use
  Company Number: A202300250-001

PATIENT
  Age: 56 Year
  Sex: Female

DRUGS (24)
  1. BENDAMUSTINE HYDROCHLORIDE [Suspect]
     Active Substance: BENDAMUSTINE HYDROCHLORIDE
     Indication: Follicular lymphoma stage II
     Dosage: 90 MG/M2, CYCLE 1 GB THERAPY
     Route: 042
     Dates: start: 20190806
  2. BENDAMUSTINE HYDROCHLORIDE [Suspect]
     Active Substance: BENDAMUSTINE HYDROCHLORIDE
     Dosage: 90 MG/M2, CYCLE 2 GB THERAPY
     Route: 042
     Dates: start: 2019
  3. BENDAMUSTINE HYDROCHLORIDE [Suspect]
     Active Substance: BENDAMUSTINE HYDROCHLORIDE
     Dosage: 90 MG/M2, CYCLE 3 GB THERAPY
     Route: 042
     Dates: start: 2019
  4. BENDAMUSTINE HYDROCHLORIDE [Suspect]
     Active Substance: BENDAMUSTINE HYDROCHLORIDE
     Dosage: 90 MG/M2, CYCLE 4 GB THERAPY
     Route: 042
     Dates: start: 2019
  5. BENDAMUSTINE HYDROCHLORIDE [Suspect]
     Active Substance: BENDAMUSTINE HYDROCHLORIDE
     Dosage: 90 MG/M2, CYCLE 5 GB THERAPY
     Route: 042
     Dates: start: 2019
  6. BENDAMUSTINE HYDROCHLORIDE [Suspect]
     Active Substance: BENDAMUSTINE HYDROCHLORIDE
     Dosage: 90 MG/M2, CYCLE 6 GB THERAPY
     Route: 042
     Dates: start: 20191225
  7. GAZYVA [Concomitant]
     Active Substance: OBINUTUZUMAB
     Indication: Follicular lymphoma stage II
     Dosage: UNK, CYCLE 1 GB THERAPY
     Route: 042
     Dates: start: 20190806
  8. GAZYVA [Concomitant]
     Active Substance: OBINUTUZUMAB
     Dosage: UNK, CYCLE 2 GB THERAPY
     Route: 042
     Dates: start: 2019
  9. GAZYVA [Concomitant]
     Active Substance: OBINUTUZUMAB
     Dosage: UNK, CYCLE 3 GB THERAPY
     Route: 042
     Dates: start: 2019
  10. GAZYVA [Concomitant]
     Active Substance: OBINUTUZUMAB
     Dosage: UNK, CYCLE 4 GB THERAPY
     Route: 042
     Dates: start: 2019
  11. GAZYVA [Concomitant]
     Active Substance: OBINUTUZUMAB
     Dosage: UNK, CYCLE 5 GB THERAPY
     Route: 042
     Dates: start: 2019
  12. GAZYVA [Concomitant]
     Active Substance: OBINUTUZUMAB
     Dosage: UNK, CYCLE 6 GB THERAPY
     Route: 042
     Dates: start: 20191225
  13. GAZYVA [Concomitant]
     Active Substance: OBINUTUZUMAB
     Dosage: UNK, CYCLE 1 OBINUTUZMAB MAINTENANCE THERAPY
     Route: 042
  14. GAZYVA [Concomitant]
     Active Substance: OBINUTUZUMAB
     Dosage: UNK, CYCLE 2 OBINUTUZMAB MAINTENANCE THERAPY
     Route: 042
  15. GAZYVA [Concomitant]
     Active Substance: OBINUTUZUMAB
     Dosage: UNK, CYCLE 3 OBINUTUZMAB MAINTENANCE THERAPY
     Route: 042
  16. GAZYVA [Concomitant]
     Active Substance: OBINUTUZUMAB
     Dosage: UNK, CYCLE 4 OBINUTUZMAB MAINTENANCE THERAPY
     Route: 042
  17. GAZYVA [Concomitant]
     Active Substance: OBINUTUZUMAB
     Dosage: UNK, CYCLE 5 OBINUTUZMAB MAINTENANCE THERAPY
     Route: 042
  18. GAZYVA [Concomitant]
     Active Substance: OBINUTUZUMAB
     Dosage: UNK, CYCLE 6 OBINUTUZMAB MAINTENANCE THERAPY
     Route: 042
  19. GAZYVA [Concomitant]
     Active Substance: OBINUTUZUMAB
     Dosage: UNK, CYCLE 7 OBINUTUZMAB MAINTENANCE THERAPY
     Route: 042
  20. GAZYVA [Concomitant]
     Active Substance: OBINUTUZUMAB
     Dosage: UNK, CYCLE 8 OBINUTUZMAB MAINTENANCE THERAPY
     Route: 042
  21. GAZYVA [Concomitant]
     Active Substance: OBINUTUZUMAB
     Dosage: UNK, CYCLE 9 OBINUTUZMAB MAINTENANCE THERAPY
     Route: 042
  22. GAZYVA [Concomitant]
     Active Substance: OBINUTUZUMAB
     Dosage: UNK, CYCLE 10 OBINUTUZMAB MAINTENANCE THERAPY
     Route: 042
  23. GAZYVA [Concomitant]
     Active Substance: OBINUTUZUMAB
     Dosage: UNK, CYCLE 11 OBINUTUZMAB MAINTENANCE THERAPY
     Route: 042
  24. GAZYVA [Concomitant]
     Active Substance: OBINUTUZUMAB
     Dosage: UNK, CYCLE 12 OBINUTUZMAB MAINTENANCE THERAPY
     Route: 042

REACTIONS (1)
  - COVID-19 [Recovered/Resolved]

NARRATIVE: CASE EVENT DATE: 20220130
